FAERS Safety Report 8827018 (Version 2)
Quarter: 2012Q4

REPORT INFORMATION
  Report Type: Report from Study
  Country: DE (occurrence: DE)
  Receive Date: 20121005
  Receipt Date: 20121015
  Transmission Date: 20130627
  Serious: Yes (Hospitalization)
  Sender: FDA-Public Use
  Company Number: DE-UCBSA-067984

PATIENT
  Age: 53 Year
  Sex: Female
  Weight: 168.3 kg

DRUGS (8)
  1. CERTOLIZUMAB PEGOL [Suspect]
     Indication: PSORIATIC ARTHROPATHY
     Route: 058
     Dates: start: 20110309
  2. AMITRIPTYLINE [Concomitant]
     Dates: start: 2008
  3. L-THYROXINE [Concomitant]
  4. SALBUTAMOL [Concomitant]
  5. NOVAMIN SULFON [Concomitant]
  6. THIAZIDE [Concomitant]
     Dosage: 125 MICOGRAM
  7. VITAMIN D3 [Concomitant]
  8. CALCIUM [Concomitant]

REACTIONS (1)
  - Skin ulcer [Recovered/Resolved]
